FAERS Safety Report 4741784-2 (Version None)
Quarter: 2005Q3

REPORT INFORMATION
  Report Type: 
  Country: None (occurrence: None)
  Receive Date: 20050808
  Receipt Date: 20050725
  Transmission Date: 20060218
  Serious: Yes (Life-Threatening, Hospitalization)
  Sender: FDA-Public Use
  Company Number: S05-FRA-02693-01

PATIENT
  Age: 61 Year
  Sex: Female

DRUGS (5)
  1. CITALOPRAM HYDROBROMIDE [Suspect]
     Dosage: 20 MG QD PO
     Route: 048
     Dates: end: 20001107
  2. MODOPAR (LEVODOPA BENSERAZIDE) [Suspect]
     Indication: PARKINSON'S DISEASE
     Dosage: 500 MG QD PO
     Route: 048
     Dates: end: 20001102
  3. SAVARINE (CHLOROQUINE/PROGUANIL) [Suspect]
     Indication: MALARIA PROPHYLAXIS
     Dosage: 1 UNK QD PO
     Route: 048
     Dates: start: 20000908, end: 20001124
  4. STAMARIL (YELLOW FEVER VACCINE) [Suspect]
     Indication: IMMUNISATION
     Dosage: 1 UNK ONCE
     Dates: start: 20000925, end: 20000925
  5. STAMARIL (YELLOW FEVER VACCINE) [Suspect]
     Indication: YELLOW FEVER
     Dosage: 1 UNK ONCE
     Dates: start: 20000925, end: 20000925

REACTIONS (12)
  - ACUTE RESPIRATORY DISTRESS SYNDROME [None]
  - ASTHENIA [None]
  - DRUG INTOLERANCE [None]
  - ENDOCARDITIS BACTERIAL [None]
  - FATIGUE [None]
  - GUILLAIN-BARRE SYNDROME [None]
  - HYPOKINESIA [None]
  - INAPPROPRIATE ANTIDIURETIC HORMONE SECRETION [None]
  - INFECTION PARASITIC [None]
  - LUNG INFECTION PSEUDOMONAL [None]
  - PAIN [None]
  - STAPHYLOCOCCAL INFECTION [None]
